FAERS Safety Report 5114519-1 (Version None)
Quarter: 2006Q3

REPORT INFORMATION
  Report Type: 
  Country: None (occurrence: None)
  Receive Date: 20060926
  Receipt Date: 20060913
  Transmission Date: 20061208
  Serious: Yes (Other)
  Sender: FDA-Public Use
  Company Number: MY-JNJFOC-20060903436

PATIENT
  Age: 4 Year
  Sex: Male

DRUGS (4)
  1. REMICADE [Suspect]
     Indication: CROHN'S DISEASE
     Dosage: WEEKS 0, 2 AND 6
     Route: 042
  2. MESALAZINE [Concomitant]
     Indication: CROHN'S DISEASE
  3. PREDNISOLONE [Concomitant]
     Indication: CROHN'S DISEASE
  4. AZATHIOPRINE [Concomitant]
     Indication: CROHN'S DISEASE

REACTIONS (1)
  - LEIOMYOSARCOMA METASTATIC [None]
